FAERS Safety Report 6236717-6 (Version None)
Quarter: 2009Q2

REPORT INFORMATION
  Report Type: 
  Country: None (occurrence: None)
  Receive Date: 20090619
  Receipt Date: 20090421
  Transmission Date: 20091009
  Serious: No
  Sender: FDA-Public Use
  Company Number: US-ASTRAZENECA-2009UW10034

PATIENT
  Age: 68 Year
  Sex: Female
  Weight: 79.4 kg

DRUGS (15)
  1. ATACAND [Suspect]
     Route: 048
     Dates: start: 20090401
  2. TOPROL-XL [Concomitant]
     Route: 048
  3. SKELETON [Concomitant]
  4. TYLENOL W/ CODEINE [Concomitant]
  5. SYNTHROID [Concomitant]
  6. LASIX [Concomitant]
  7. POTASSIUM SUPPLEMENT [Concomitant]
  8. ALLEGRA [Concomitant]
  9. FLOVENT [Concomitant]
  10. COMBIVENT [Concomitant]
  11. ASPIRIN [Concomitant]
  12. NITRO-DUR [Concomitant]
  13. PREVACID [Concomitant]
  14. OXYTROL [Concomitant]
  15. BENTYL [Concomitant]

REACTIONS (4)
  - DIZZINESS [None]
  - ILL-DEFINED DISORDER [None]
  - NAUSEA [None]
  - PYREXIA [None]
